FAERS Safety Report 25184886 (Version 1)
Quarter: 2025Q2

REPORT INFORMATION
  Report Type: Report from Study
  Country: FR (occurrence: FR)
  Receive Date: 20250410
  Receipt Date: 20250410
  Transmission Date: 20250717
  Serious: Yes (Hospitalization)
  Sender: TAKEDA
  Company Number: FR-TAKEDA-2025TUS034136

PATIENT
  Sex: Male

DRUGS (12)
  1. VELAGLUCERASE ALFA [Suspect]
     Active Substance: VELAGLUCERASE ALFA
     Indication: Gaucher^s disease
     Dosage: 3600 INTERNATIONAL UNIT/KILOGRAM, Q2WEEKS
     Dates: start: 20230224, end: 20240207
  2. TAHOR [Concomitant]
     Active Substance: ATORVASTATIN CALCIUM
     Indication: Prophylaxis
     Dosage: 20 MILLIGRAM, QD
  3. TRESIBA [Concomitant]
     Active Substance: INSULIN DEGLUDEC
     Indication: Diabetes mellitus
     Dosage: 14 INTERNATIONAL UNIT, QD
  4. FEBUXOSTAT [Concomitant]
     Active Substance: FEBUXOSTAT
     Indication: Gout
     Dosage: 80 MILLIGRAM, QD
  5. LYUMJEV [Concomitant]
     Active Substance: INSULIN LISPRO-AABC
     Indication: Diabetes mellitus
     Dosage: 30 MILLIGRAM, QD
  6. RAMIPRIL [Concomitant]
     Active Substance: RAMIPRIL
     Indication: Hypertension
     Dosage: 10 MILLIGRAM, QD
  7. ESIDREX [Concomitant]
     Active Substance: HYDROCHLOROTHIAZIDE
     Indication: Hypertension
     Dosage: 12.5 MILLIGRAM, QD
  8. COTELLIC [Concomitant]
     Active Substance: COBIMETINIB FUMARATE
     Indication: Haber^s syndrome
     Dosage: 20 MILLIGRAM, QD
     Dates: start: 20211007, end: 20231023
  9. COTELLIC [Concomitant]
     Active Substance: COBIMETINIB FUMARATE
  10. AZITHROMYCIN ANHYDROUS [Concomitant]
     Active Substance: AZITHROMYCIN ANHYDROUS
     Indication: Influenza
  11. AMOXICILLIN [Concomitant]
     Active Substance: AMOXICILLIN
     Indication: Paronychia
     Dosage: UNK UNK, TID
     Dates: start: 202501, end: 202501
  12. PRISTINAMYCIN [Concomitant]
     Active Substance: PRISTINAMYCIN
     Indication: Paronychia
     Dosage: UNK UNK, QD
     Dates: start: 202501, end: 202501

REACTIONS (1)
  - Gastroenteritis [Recovered/Resolved]

NARRATIVE: CASE EVENT DATE: 20240521
